FAERS Safety Report 10554505 (Version 1)
Quarter: 2014Q4

REPORT INFORMATION
  Report Type: Spontaneous
  Country: US (occurrence: US)
  Receive Date: 20141030
  Receipt Date: 20141030
  Transmission Date: 20150529
  Serious: No
  Sender: FDA-Public Use
  Company Number: US-PFIZER INC-2014296621

PATIENT
  Age: 77 Year
  Sex: Female
  Weight: 100 kg

DRUGS (6)
  1. COZAAR [Concomitant]
     Active Substance: LOSARTAN POTASSIUM
     Indication: HYPERTENSION
     Dosage: 100 MG, DAILY
  2. POTASSIUM [Concomitant]
     Active Substance: POTASSIUM
     Indication: BLOOD POTASSIUM DECREASED
     Dosage: 20 MEQ, THREE TIMES A DAY
  3. ROBAXIN [Concomitant]
     Active Substance: METHOCARBAMOL
     Indication: HYPOTONIA
     Dosage: 500 MG, DAILY
  4. ADVIL [Suspect]
     Active Substance: IBUPROFEN
     Indication: MUSCLE STRAIN
     Dosage: 200 MG (ONE TABLET), THREE TIMES A DAY
     Dates: start: 201410, end: 201410
  5. ADVIL [Suspect]
     Active Substance: IBUPROFEN
     Dosage: 400 MG (TWO TABLETS), THREE TIMES A DAY
     Dates: start: 20141020, end: 20141026
  6. HYGROTON [Concomitant]
     Active Substance: CHLORTHALIDONE
     Indication: HYPERTENSION
     Dosage: 50 MG, DAILY

REACTIONS (1)
  - Local swelling [Not Recovered/Not Resolved]

NARRATIVE: CASE EVENT DATE: 201410
